FAERS Safety Report 8123217-1 (Version None)
Quarter: 2012Q1

REPORT INFORMATION
  Report Type: 
  Country: None (occurrence: None)
  Receive Date: 20120208
  Receipt Date: 20120126
  Transmission Date: 20120608
  Serious: Yes (Hospitalization, Congenital Anomaly)
  Sender: FDA-Public Use
  Company Number: DE-MYLANLABS-2012S1001860

PATIENT
  Age: 0 Year
  Sex: Male
  Weight: 3.96 kg

DRUGS (4)
  1. FOLIC ACID [Concomitant]
     Dosage: 0.4 [MG/D ]
     Route: 064
     Dates: start: 20110505, end: 20110505
  2. XIPAMID [Suspect]
     Dosage: 10 [MG/D ]/ FROM JANUARY TO APRIL 2011
     Route: 064
     Dates: start: 20110115, end: 20110415
  3. RAMIPRIL [Suspect]
     Dosage: 2.5 [MG/D ]
     Route: 064
     Dates: start: 20101228, end: 20110315
  4. AVELOX [Concomitant]
     Route: 064
     Dates: start: 20110201, end: 20110228

REACTIONS (3)
  - FOETAL EXPOSURE DURING PREGNANCY [None]
  - MATERNAL EXPOSURE DURING PREGNANCY [None]
  - FALLOT'S TETRALOGY [None]
